FAERS Safety Report 17393359 (Version 1)
Quarter: 2020Q1

REPORT INFORMATION
  Report Type: Spontaneous
  Country: CA (occurrence: CA)
  Receive Date: 20200208
  Receipt Date: 20200208
  Transmission Date: 20200409
  Serious: Yes (Hospitalization)
  Sender: FDA-Public Use
  Company Number: CA-ROCHE-2544668

PATIENT
  Sex: Female

DRUGS (2)
  1. OCREVUS [Suspect]
     Active Substance: OCRELIZUMAB
     Indication: PRODUCT USED FOR UNKNOWN INDICATION
     Route: 042
  2. ATIVAN [Concomitant]
     Active Substance: LORAZEPAM

REACTIONS (4)
  - Fall [Unknown]
  - Sensory disturbance [Unknown]
  - Muscular weakness [Unknown]
  - Paraesthesia [Unknown]
